FAERS Safety Report 24194615 (Version 1)
Quarter: 2024Q3

REPORT INFORMATION
  Report Type: Spontaneous
  Country: US (occurrence: US)
  Receive Date: 20240809
  Receipt Date: 20240809
  Transmission Date: 20241016
  Serious: No
  Sender: DAIICHI
  Company Number: US-DSJP-DSU-2024-140092

PATIENT
  Sex: Female

DRUGS (2)
  1. ENHERTU [Suspect]
     Active Substance: FAM-TRASTUZUMAB DERUXTECAN-NXKI
     Indication: Breast cancer metastatic
     Dosage: UNK
     Route: 065
  2. ENHERTU [Suspect]
     Active Substance: FAM-TRASTUZUMAB DERUXTECAN-NXKI
     Indication: HER2 positive breast cancer

REACTIONS (11)
  - Gastrooesophageal reflux disease [Unknown]
  - Irritable bowel syndrome [Unknown]
  - Gastrointestinal disorder [Recovering/Resolving]
  - Constipation [Unknown]
  - Dyspepsia [Unknown]
  - Abdominal pain upper [Unknown]
  - Blood potassium decreased [Unknown]
  - Fatigue [Recovering/Resolving]
  - Diarrhoea [Unknown]
  - Nausea [Unknown]
  - Vomiting [Unknown]
